FAERS Safety Report 19543274 (Version 2)
Quarter: 2021Q4

REPORT INFORMATION
  Report Type: Spontaneous
  Country: US (occurrence: US)
  Receive Date: 20210713
  Receipt Date: 20211129
  Transmission Date: 20220303
  Serious: Yes (Other)
  Sender: FDA-Public Use
  Company Number: US-PFIZER INC-2020058147

PATIENT
  Age: 66 Year
  Sex: Female

DRUGS (1)
  1. XELJANZ [Suspect]
     Active Substance: TOFACITINIB CITRATE
     Indication: Dermatitis psoriasiform
     Dosage: 5 MG

REACTIONS (4)
  - Autoimmune disorder [Unknown]
  - Platelet disorder [Unknown]
  - Lipids increased [Unknown]
  - Off label use [Unknown]
